FAERS Safety Report 11636416 (Version 1)
Quarter: 2015Q4

REPORT INFORMATION
  Report Type: Spontaneous
  Country: US (occurrence: None)
  Receive Date: 20151015
  Receipt Date: 20151015
  Transmission Date: 20160304
  Serious: Yes (Other)
  Sender: FDA-Public Use
  Company Number: None

PATIENT
  Age: 33 Year
  Sex: Female
  Weight: 65.77 kg

DRUGS (2)
  1. GABAPENTIN 300MG [Suspect]
     Active Substance: GABAPENTIN
     Indication: MYALGIA
     Route: 048
     Dates: start: 20150912, end: 20151006
  2. GABAPENTIN 300MG [Suspect]
     Active Substance: GABAPENTIN
     Indication: MYOSITIS
     Route: 048
     Dates: start: 20150912, end: 20151006

REACTIONS (4)
  - Skin lesion [None]
  - Disorientation [None]
  - Activities of daily living impaired [None]
  - Rash [None]

NARRATIVE: CASE EVENT DATE: 20150914
